FAERS Safety Report 17976426 (Version 1)
Quarter: 2020Q3

REPORT INFORMATION
  Report Type: Spontaneous
  Country: FR (occurrence: FR)
  Receive Date: 20200703
  Receipt Date: 20200703
  Transmission Date: 20201103
  Serious: Yes (Hospitalization, Other)
  Sender: FDA-Public Use
  Company Number: FR-ROCHE-2634629

PATIENT
  Age: 89 Year
  Sex: Female
  Weight: 53 kg

DRUGS (8)
  1. TARDYFERON [Concomitant]
     Active Substance: FERROUS SULFATE
  2. CELLCEPT [Suspect]
     Active Substance: MYCOPHENOLATE MOFETIL\MYCOPHENOLATE MOFETIL HYDROCHLORIDE
     Indication: DERMATOMYOSITIS
     Route: 048
     Dates: start: 20200110
  3. ELIQUIS [Concomitant]
     Active Substance: APIXABAN
  4. ACIDE FOLIQUE [Concomitant]
     Active Substance: FOLIC ACID
  5. DUOTRAV [Concomitant]
     Active Substance: TIMOLOL MALEATE\TRAVOPROST
  6. OROCAL [CALCIUM CARBONATE] [Concomitant]
  7. BISOCE [Concomitant]
     Active Substance: BISOPROLOL
  8. MIANSERINE [MIANSERIN] [Concomitant]
     Active Substance: MIANSERIN HYDROCHLORIDE

REACTIONS (3)
  - Overdose [Unknown]
  - Neutropenia [Not Recovered/Not Resolved]
  - Pancytopenia [Recovering/Resolving]

NARRATIVE: CASE EVENT DATE: 20200316
